FAERS Safety Report 5295952-4 (Version None)
Quarter: 2007Q2

REPORT INFORMATION
  Report Type: 
  Country: None (occurrence: None)
  Receive Date: 20070406
  Receipt Date: 20070317
  Transmission Date: 20071010
  Serious: Yes (Hospitalization)
  Sender: FDA-Public Use
  Company Number: 2007BM000042

PATIENT
  Age: 40 Year
  Sex: Male

DRUGS (1)
  1. ORAPRED [Suspect]
     Indication: ASTHMA
     Dosage: QD; PO
     Route: 048

REACTIONS (4)
  - ABNORMAL BEHAVIOUR [None]
  - BLOOD GLUCOSE INCREASED [None]
  - BREATH SOUNDS ABNORMAL [None]
  - PHAEHYPHOMYCOSIS [None]
